FAERS Safety Report 9837228 (Version 1)
Quarter: 2014Q1

REPORT INFORMATION
  Report Type: Report from Study
  Country: LB (occurrence: LB)
  Receive Date: 20140123
  Receipt Date: 20140123
  Transmission Date: 20141002
  Serious: Yes (Death)
  Sender: FDA-Public Use
  Company Number: LB-SA-2014SA007446

PATIENT
  Age: 60 Year
  Sex: Male

DRUGS (6)
  1. LANTUS SOLOSTAR [Suspect]
     Indication: DIABETES MELLITUS
     Dosage: DOSE:45 UNIT(S)
     Route: 058
     Dates: start: 2012
  2. DIAMICRON [Concomitant]
     Indication: DIABETES MELLITUS
     Route: 048
  3. DIOVAN [Concomitant]
     Route: 048
  4. MONOCINQUE [Concomitant]
     Route: 048
  5. BISOPROLOL [Concomitant]
     Route: 048
  6. SOLOSTAR [Concomitant]
     Indication: DEVICE THERAPY
     Route: 058
     Dates: start: 2012

REACTIONS (1)
  - Myocardial infarction [Fatal]
